FAERS Safety Report 23257071 (Version 3)
Quarter: 2023Q4

REPORT INFORMATION
  Report Type: Spontaneous
  Country: IT (occurrence: IT)
  Receive Date: 20231204
  Receipt Date: 20231227
  Transmission Date: 20240110
  Serious: Yes (Hospitalization, Other)
  Sender: FDA-Public Use
  Company Number: IT-DOCGEN-2307861

PATIENT
  Age: 60 Year
  Sex: Male

DRUGS (19)
  1. ALPRAZOLAM [Suspect]
     Active Substance: ALPRAZOLAM
     Indication: Anxiety
     Dosage: UNK
     Route: 065
     Dates: start: 1990
  2. ALPRAZOLAM [Suspect]
     Active Substance: ALPRAZOLAM
     Indication: Schizophrenia
  3. CLOZAPINE [Suspect]
     Active Substance: CLOZAPINE
     Indication: Hallucination, auditory
     Dosage: 225 MILLIGRAM, ONCE A DAY
     Route: 065
     Dates: start: 201811, end: 2022
  4. CLOZAPINE [Suspect]
     Active Substance: CLOZAPINE
     Indication: Depressive symptom
     Dosage: 200 MILLIGRAM, ONCE A DAY
     Route: 065
     Dates: start: 2004, end: 2018
  5. CLOZAPINE [Suspect]
     Active Substance: CLOZAPINE
     Indication: Schizophrenia
  6. CITALOPRAM [Suspect]
     Active Substance: CITALOPRAM HYDROBROMIDE
     Indication: Depressive symptom
     Dosage: 20 MILLIGRAM, ONCE A DAY
     Route: 065
     Dates: start: 201811
  7. CITALOPRAM [Suspect]
     Active Substance: CITALOPRAM HYDROBROMIDE
     Indication: Schizophrenia
     Dosage: 10 MILLIGRAM, ONCE A DAY
     Route: 065
     Dates: start: 2002
  8. OLANZAPINE [Suspect]
     Active Substance: OLANZAPINE
     Indication: Depressive symptom
     Dosage: 20 MILLIGRAM, ONCE A DAY
     Route: 065
     Dates: start: 2002
  9. OLANZAPINE [Suspect]
     Active Substance: OLANZAPINE
     Indication: Schizophrenia
  10. BROTIZOLAM [Suspect]
     Active Substance: BROTIZOLAM
     Indication: Anxiety
     Dosage: UNK, AS NECESSARY
     Route: 065
     Dates: start: 1990
  11. BROTIZOLAM [Suspect]
     Active Substance: BROTIZOLAM
     Indication: Schizophrenia
  12. BIPERIDEN [Suspect]
     Active Substance: BIPERIDEN
     Indication: Hallucination, auditory
     Dosage: 4 MILLIGRAM, ONCE A DAY
     Route: 065
     Dates: start: 201811
  13. BIPERIDEN [Suspect]
     Active Substance: BIPERIDEN
     Indication: Schizophrenia
  14. HALOPERIDOL [Suspect]
     Active Substance: HALOPERIDOL
     Indication: Anxiety
     Dosage: 50 MILLIGRAM(ONE MONTH)
     Route: 065
     Dates: start: 1990, end: 2002
  15. HALOPERIDOL [Suspect]
     Active Substance: HALOPERIDOL
     Indication: Hallucination, auditory
     Dosage: 16 GTT DROPS, ONCE A DAY
     Route: 065
     Dates: start: 201811
  16. HALOPERIDOL [Suspect]
     Active Substance: HALOPERIDOL
     Indication: Schizophrenia
  17. RIVOTRIL [Suspect]
     Active Substance: CLONAZEPAM
     Indication: Hallucination, auditory
     Dosage: 12 GTT DROPS, ONCE A DAY
     Route: 065
     Dates: start: 201811
  18. RIVOTRIL [Suspect]
     Active Substance: CLONAZEPAM
     Indication: Schizophrenia
  19. LURASIDONE [Concomitant]
     Active Substance: LURASIDONE
     Indication: Schizophrenia
     Dosage: 148 MILLIGRAM, ONCE A DAY
     Route: 065
     Dates: start: 201811

REACTIONS (7)
  - Therapy partial responder [Unknown]
  - Treatment noncompliance [Unknown]
  - Psychomotor retardation [Unknown]
  - Weight increased [Unknown]
  - Sedation [Unknown]
  - Medication error [Unknown]
  - Social problem [Unknown]

NARRATIVE: CASE EVENT DATE: 20181101
